FAERS Safety Report 6349040-6 (Version None)
Quarter: 2009Q3

REPORT INFORMATION
  Report Type: 
  Country: None (occurrence: None)
  Receive Date: 20090911
  Receipt Date: 20090907
  Transmission Date: 20100115
  Serious: Yes (Hospitalization)
  Sender: FDA-Public Use
  Company Number: FR-AMGEN-STX363239

PATIENT
  Age: 57 Year
  Sex: Female

DRUGS (4)
  1. MIMPARA [Suspect]
     Indication: HYPERPARATHYROIDISM PRIMARY
  2. DICLOFENAC SODIUM [Suspect]
  3. DEPAKENE [Concomitant]
  4. GARDENAL [Concomitant]

REACTIONS (7)
  - DRUG TOXICITY [None]
  - HYPOCALCAEMIA [None]
  - METABOLIC ACIDOSIS [None]
  - MUSCULAR WEAKNESS [None]
  - NAUSEA [None]
  - PARAESTHESIA [None]
  - RENAL FAILURE ACUTE [None]
